FAERS Safety Report 12559630 (Version 2)
Quarter: 2016Q3

REPORT INFORMATION
  Report Type: Spontaneous
  Country: US (occurrence: US)
  Receive Date: 20160715
  Receipt Date: 20160830
  Transmission Date: 20161109
  Serious: No
  Sender: FDA-Public Use
  Company Number: US-LEO PHARMA-243011

PATIENT
  Age: 50 Year
  Sex: Female

DRUGS (1)
  1. PICATO [Suspect]
     Active Substance: INGENOL MEBUTATE
     Indication: PRECANCEROUS SKIN LESION
     Route: 061
     Dates: start: 20160625, end: 20160626

REACTIONS (8)
  - Swelling [Recovered/Resolved]
  - Influenza like illness [Recovered/Resolved]
  - Application site exfoliation [Not Recovered/Not Resolved]
  - Incorrect drug administration duration [Unknown]
  - Erythema [Recovered/Resolved]
  - Hyperaesthesia [Recovered/Resolved]
  - Incorrect product storage [Recovered/Resolved]
  - Incorrect dose administered [Recovered/Resolved]

NARRATIVE: CASE EVENT DATE: 20160625
